FAERS Safety Report 19053107 (Version 1)
Quarter: 2021Q1

REPORT INFORMATION
  Report Type: Spontaneous
  Country: SE (occurrence: SE)
  Receive Date: 20210324
  Receipt Date: 20210324
  Transmission Date: 20210420
  Serious: Yes (Hospitalization, Other)
  Sender: FDA-Public Use
  Company Number: SE-PFIZER INC-2021207925

PATIENT
  Age: 76 Year
  Sex: Female
  Weight: 70 kg

DRUGS (3)
  1. CHAMPIX [Suspect]
     Active Substance: VARENICLINE TARTRATE
     Indication: SMOKING CESSATION THERAPY
     Dosage: 0.5 MG (DAY 1?3 AND 4?7)
     Dates: start: 20210126
  2. ZENTRALIN [Concomitant]
     Dosage: UNK
     Dates: start: 2018
  3. CHAMPIX [Suspect]
     Active Substance: VARENICLINE TARTRATE
     Dosage: 1 MG (DAY 8?14 AND 15?)
     Dates: end: 20210219

REACTIONS (16)
  - Gingival pain [Recovered/Resolved]
  - Thirst [Not Recovered/Not Resolved]
  - Vomiting [Recovered/Resolved]
  - Nausea [Recovered/Resolved]
  - Constipation [Not Recovered/Not Resolved]
  - Flatulence [Recovered/Resolved]
  - Bradyphrenia [Not Recovered/Not Resolved]
  - Micturition urgency [Not Recovered/Not Resolved]
  - Chest pain [Not Recovered/Not Resolved]
  - Cough [Recovered/Resolved]
  - Feeling cold [Recovered/Resolved]
  - Dysuria [Not Recovered/Not Resolved]
  - Haematochezia [Recovered/Resolved]
  - Dry mouth [Not Recovered/Not Resolved]
  - Weight increased [Not Recovered/Not Resolved]
  - Back pain [Not Recovered/Not Resolved]

NARRATIVE: CASE EVENT DATE: 20210126
